FAERS Safety Report 9007373 (Version 1)
Quarter: 2013Q1

REPORT INFORMATION
  Report Type: Spontaneous
  Country: NL (occurrence: NL)
  Receive Date: 20130110
  Receipt Date: 20130110
  Transmission Date: 20140127
  Serious: Yes (Hospitalization)
  Sender: FDA-Public Use
  Company Number: NL-MYLANLABS-2013S1000063

PATIENT
  Age: 49 Year
  Sex: Female

DRUGS (3)
  1. LISINOPRIL [Suspect]
     Indication: HYPERTENSION
     Route: 065
  2. LEVETIRACETAM [Concomitant]
     Indication: EPILEPSY
     Route: 065
  3. NITRAZEPAM [Concomitant]
     Route: 065

REACTIONS (2)
  - Angioedema [Recovered/Resolved]
  - Acute abdomen [Recovered/Resolved]
